FAERS Safety Report 6006281-5 (Version None)
Quarter: 2008Q4

REPORT INFORMATION
  Report Type: 
  Country: None (occurrence: None)
  Receive Date: 20081217
  Receipt Date: 20081211
  Transmission Date: 20090506
  Serious: Yes (Hospitalization, Other)
  Sender: FDA-Public Use
  Company Number: US-ABBOTT-08P-163-0492499-00

PATIENT

DRUGS (1)
  1. HUMIRA [Suspect]
     Indication: ANKYLOSING SPONDYLITIS
     Route: 058
     Dates: start: 20070718, end: 20080626

REACTIONS (3)
  - HYPOTHYROIDISM [None]
  - INJECTION SITE ABSCESS [None]
  - PITUITARY TUMOUR [None]
